FAERS Safety Report 19173706 (Version 1)
Quarter: 2021Q2

REPORT INFORMATION
  Report Type: Spontaneous
  Country: TH (occurrence: TH)
  Receive Date: 20210423
  Receipt Date: 20210423
  Transmission Date: 20210717
  Serious: Yes (Hospitalization, Other)
  Sender: FDA-Public Use
  Company Number: TH-009507513-2104THA003865

PATIENT
  Age: 81 Year
  Sex: Female

DRUGS (2)
  1. WARFARIN [Concomitant]
     Active Substance: WARFARIN
  2. INVANZ [Suspect]
     Active Substance: ERTAPENEM SODIUM
     Indication: APPENDICEAL ABSCESS
     Dosage: 1 GRAM, QOD
     Route: 042
     Dates: start: 20210319, end: 20210401

REACTIONS (3)
  - Epilepsy [Recovered/Resolved]
  - Somnolence [Recovered/Resolved]
  - Pulmonary tuberculosis [Not Recovered/Not Resolved]

NARRATIVE: CASE EVENT DATE: 20210325
